FAERS Safety Report 16721758 (Version 1)
Quarter: 2019Q3

REPORT INFORMATION
  Report Type: Report from Study
  Country: GB (occurrence: GB)
  Receive Date: 20190820
  Receipt Date: 20190820
  Transmission Date: 20191005
  Serious: Yes (Hospitalization, Other)
  Sender: FDA-Public Use
  Company Number: GB-UCBSA-2019034270

PATIENT
  Age: 49 Year
  Sex: Male

DRUGS (2)
  1. CERTOLIZUMAB PEGOL [Suspect]
     Active Substance: CERTOLIZUMAB PEGOL
     Indication: RHEUMATOID ARTHRITIS
     Dosage: UNK
     Route: 058
     Dates: start: 20150901
  2. METHOTREXATE. [Concomitant]
     Active Substance: METHOTREXATE
     Indication: PRODUCT USED FOR UNKNOWN INDICATION
     Dosage: UNK

REACTIONS (9)
  - Pyrexia [Unknown]
  - Mouth ulceration [Unknown]
  - Atelectasis [Unknown]
  - Visual impairment [Unknown]
  - Postoperative wound infection [Unknown]
  - Tachycardia [Unknown]
  - Tonsillitis [Unknown]
  - Dehydration [Unknown]
  - Patella fracture [Unknown]

NARRATIVE: CASE EVENT DATE: 20170717
